FAERS Safety Report 10027048 (Version 1)
Quarter: 2014Q1

REPORT INFORMATION
  Report Type: Spontaneous
  Country: GB (occurrence: None)
  Receive Date: 20140318
  Receipt Date: 20140318
  Transmission Date: 20141002
  Serious: Yes (Other)
  Sender: FDA-Public Use
  Company Number: AUR-APL-2014-02642

PATIENT
  Age: 66 Year
  Sex: Female
  Weight: 78.92 kg

DRUGS (1)
  1. RAMIPRIL (RAMIPRIL) [Suspect]
     Indication: HYPERTENSION

REACTIONS (2)
  - Myalgia [None]
  - Musculoskeletal stiffness [None]
